FAERS Safety Report 7191329-5 (Version None)
Quarter: 2010Q4

REPORT INFORMATION
  Report Type: 
  Country: None (occurrence: None)
  Receive Date: 20101207
  Receipt Date: 20101126
  Transmission Date: 20110411
  Serious: Yes (Life-Threatening, Hospitalization, Other)
  Sender: FDA-Public Use
  Company Number: WAES 1009FRA00073

PATIENT
  Age: 55 Year
  Sex: Female

DRUGS (12)
  1. ISENTRESS [Suspect]
     Indication: HIV INFECTION
     Dosage: 800 MG BID, PO
     Route: 048
     Dates: start: 20100803, end: 20100920
  2. LAMIVUDINE [Suspect]
     Indication: HIV INFECTION
     Dosage: 300 MG DAILY, PO
     Route: 048
     Dates: start: 20100803, end: 20100920
  3. TENOFOVIR [Suspect]
     Indication: HIV INFECTION
     Dosage: 245 MG DAILY, PO
     Route: 048
     Dates: start: 20100803, end: 20100920
  4. RIFAMPIN [Suspect]
     Indication: TUBERCULOSIS
     Dosage: 600 MG DAILY, PO
     Route: 048
     Dates: start: 20100728, end: 20100920
  5. ISONIAZID [Suspect]
     Indication: TUBERCULOSIS
     Dosage: 250 MG DAILY, PO
     Route: 048
     Dates: start: 20100728, end: 20100920
  6. AMOXICILLIN AND CLAVULANATE POTASSIUM [Suspect]
     Indication: PYREXIA
     Dosage: 2 TAB DAILY; PO
     Route: 048
     Dates: start: 20100907, end: 20100911
  7. CEFIXIME [Suspect]
     Indication: PYREXIA
     Dosage: 400 MG DAILY, PO
     Route: 048
     Dates: start: 20100911, end: 20100915
  8. ASPIRIN [Concomitant]
  9. ATORVASTATIN CALCIUM [Concomitant]
  10. CHONDROITIN SULFATE SODIUM [Concomitant]
  11. LANSOPRAZOLE [Concomitant]
  12. TRAMADOL HCL [Concomitant]

REACTIONS (16)
  - BLOOD BICARBONATE DECREASED [None]
  - BLOOD SODIUM DECREASED [None]
  - DRUG RASH WITH EOSINOPHILIA AND SYSTEMIC SYMPTOMS [None]
  - ENTEROCOCCAL INFECTION [None]
  - HAEMATOMA [None]
  - HAEMOGLOBIN DECREASED [None]
  - HEPATIC ARTERY THROMBOSIS [None]
  - HEPATIC ENCEPHALOPATHY [None]
  - HEPATIC NECROSIS [None]
  - HEPATITIS B [None]
  - HEPATITIS FULMINANT [None]
  - LIVER TRANSPLANT [None]
  - PERITONEAL HAEMORRHAGE [None]
  - PLATELET COUNT DECREASED [None]
  - RASH [None]
  - STAPHYLOCOCCAL INFECTION [None]
